FAERS Safety Report 4493324-3 (Version None)
Quarter: 2004Q4

REPORT INFORMATION
  Report Type: 
  Country: None (occurrence: None)
  Receive Date: 20041102
  Receipt Date: 20041019
  Transmission Date: 20050328
  Serious: Yes (Other)
  Sender: FDA-Public Use
  Company Number: 2004-00693

PATIENT
  Age: 56 Year
  Sex: Female
  Weight: 51.2 kg

DRUGS (4)
  1. VELCADE [Suspect]
     Indication: MULTIPLE MYELOMA
     Dosage: 1.50 MG, IV BOLUS
     Route: 042
     Dates: start: 20041014, end: 20041018
  2. AREDIA [Concomitant]
  3. TYLENOL [Concomitant]
  4. DOXIL [Concomitant]

REACTIONS (8)
  - ALANINE AMINOTRANSFERASE INCREASED [None]
  - ANOREXIA [None]
  - ASPARTATE AMINOTRANSFERASE INCREASED [None]
  - BLOOD ALKALINE PHOSPHATASE INCREASED [None]
  - FATIGUE [None]
  - MALAISE [None]
  - NAUSEA [None]
  - THERAPY NON-RESPONDER [None]
